FAERS Safety Report 17903576 (Version 2)
Quarter: 2020Q3

REPORT INFORMATION
  Report Type: Other
  Country: CA (occurrence: CA)
  Receive Date: 20200617
  Receipt Date: 20200723
  Transmission Date: 20201103
  Serious: Yes (Other)
  Sender: FDA-Public Use
  Company Number: CA-INTERCEPT-PM2020001272

PATIENT
  Age: 49 Year
  Sex: Female

DRUGS (4)
  1. LUVOX [Suspect]
     Active Substance: FLUVOXAMINE MALEATE
     Indication: SEASONAL AFFECTIVE DISORDER
     Dosage: 100 MG, QD
     Dates: end: 202007
  2. OCALIVA [Suspect]
     Active Substance: OBETICHOLIC ACID
     Indication: PRIMARY BILIARY CHOLANGITIS
     Dosage: 5 MG, QD
     Route: 048
     Dates: start: 20200530, end: 20200530
  3. OCALIVA [Suspect]
     Active Substance: OBETICHOLIC ACID
     Dosage: 5 MG, QD
     Route: 048
     Dates: start: 20200711
  4. URSO [Concomitant]
     Active Substance: URSODIOL
     Dosage: 500 MG, BID

REACTIONS (5)
  - Serotonin syndrome [Unknown]
  - Muscle spasms [Unknown]
  - Confusional state [Unknown]
  - Palpitations [Unknown]
  - Hyperhidrosis [Unknown]

NARRATIVE: CASE EVENT DATE: 20200530
